FAERS Safety Report 17008051 (Version 1)
Quarter: 2019Q4

REPORT INFORMATION
  Report Type: Report from Study
  Country: None (occurrence: US)
  Receive Date: 20191108
  Receipt Date: 20191108
  Transmission Date: 20200122
  Serious: Yes (Other)
  Sender: FDA-Public Use
  Company Number: US-ABBVIE-19K-163-2985936-00

PATIENT
  Age: 63 Year
  Sex: Male
  Weight: 113.5 kg

DRUGS (2)
  1. HUMIRA [Suspect]
     Active Substance: ADALIMUMAB
     Indication: PSORIASIS
     Route: 058
     Dates: start: 201905, end: 201908
  2. HUMIRA [Suspect]
     Active Substance: ADALIMUMAB
     Route: 058
     Dates: start: 201908, end: 20191015

REACTIONS (11)
  - Skin discolouration [Unknown]
  - Localised infection [Recovered/Resolved]
  - Skin mass [Unknown]
  - Mass [Unknown]
  - Localised infection [Not Recovered/Not Resolved]
  - Mass [Recovered/Resolved]
  - Scab [Recovered/Resolved]
  - Staphylococcal infection [Recovering/Resolving]
  - Adverse drug reaction [Unknown]
  - Secretion discharge [Recovered/Resolved]
  - Axillary mass [Recovered/Resolved]

NARRATIVE: CASE EVENT DATE: 2019
